FAERS Safety Report 16395536 (Version 4)
Quarter: 2019Q3

REPORT INFORMATION
  Report Type: Report from Study
  Country: US (occurrence: US)
  Receive Date: 20190605
  Receipt Date: 20190829
  Transmission Date: 20191004
  Serious: Yes (Hospitalization, Other)
  Sender: FDA-Public Use
  Company Number: US-EXELIXIS-CABO-19020884

PATIENT
  Age: 76 Year
  Sex: Male

DRUGS (3)
  1. CABOMETYX [Suspect]
     Active Substance: CABOZANTINIB S-MALATE
     Dosage: 20 MG, QD AM (BREAKING 40 MG IN HALF)
     Dates: start: 20190622, end: 2019
  2. CABOMETYX [Suspect]
     Active Substance: CABOZANTINIB S-MALATE
     Indication: PROSTATE CANCER
     Dosage: 40 MG, QD
     Dates: start: 20190418, end: 2019
  3. CABOMETYX [Suspect]
     Active Substance: CABOZANTINIB S-MALATE
     Dosage: 40 MG
     Dates: start: 2019

REACTIONS (14)
  - Contusion [Recovered/Resolved]
  - Prostatic specific antigen increased [Unknown]
  - Pain in extremity [Recovered/Resolved]
  - Arteriogram coronary abnormal [Unknown]
  - Product prescribing error [Unknown]
  - Palmar-plantar erythrodysaesthesia syndrome [Not Recovered/Not Resolved]
  - Seizure [Unknown]
  - Blood thyroid stimulating hormone increased [Unknown]
  - Chest pain [Recovered/Resolved]
  - Nasal congestion [Unknown]
  - Hyperkeratosis [Not Recovered/Not Resolved]
  - Haemorrhoids [Recovered/Resolved]
  - Diarrhoea [Not Recovered/Not Resolved]
  - Off label use [Unknown]

NARRATIVE: CASE EVENT DATE: 2019
